FAERS Safety Report 6134061-9 (Version None)
Quarter: 2009Q1

REPORT INFORMATION
  Report Type: 
  Country: None (occurrence: None)
  Receive Date: 20090217
  Receipt Date: 20080207
  Transmission Date: 20090719
  Serious: No
  Sender: FDA-Public Use
  Company Number: AEUSA200700286

PATIENT
  Age: 45 Year
  Sex: Female
  Weight: 82.1011 kg

DRUGS (2)
  1. PROLASTIN [Suspect]
     Indication: ALPHA-1 ANTI-TRYPSIN DEFICIENCY
     Dosage: IV
     Route: 042
     Dates: start: 20070602
  2. PROLASTIN [Suspect]
     Indication: EMPHYSEMA
     Dosage: IV
     Route: 042
     Dates: start: 20070602

REACTIONS (2)
  - NAUSEA [None]
  - THROAT TIGHTNESS [None]
